FAERS Safety Report 17556098 (Version 1)
Quarter: 2020Q1

REPORT INFORMATION
  Report Type: Spontaneous
  Country: US (occurrence: US)
  Receive Date: 20200318
  Receipt Date: 20200318
  Transmission Date: 20200409
  Serious: No
  Sender: FDA-Public Use
  Company Number: US-THERAPEUTICSMD-2020TMD00911

PATIENT
  Sex: Female

DRUGS (2)
  1. IMVEXXY [Suspect]
     Active Substance: ESTRADIOL
     Dosage: 4 ?G, 1X/DAY
     Route: 067
     Dates: start: 2019, end: 2019
  2. IMVEXXY [Suspect]
     Active Substance: ESTRADIOL
     Dosage: 4 ?G, 2X/WEEK
     Route: 067

REACTIONS (1)
  - Breast pain [Unknown]
